FAERS Safety Report 6912693-5 (Version None)
Quarter: 2010Q3

REPORT INFORMATION
  Report Type: 
  Country: None (occurrence: None)
  Receive Date: 20100806
  Receipt Date: 20080922
  Transmission Date: 20110219
  Serious: No
  Sender: FDA-Public Use
  Company Number: US-PFIZER INC-2008079943

PATIENT
  Sex: Male
  Weight: 83.91 kg

DRUGS (3)
  1. VFEND [Suspect]
     Indication: BRONCHOPULMONARY ASPERGILLOSIS
     Route: 048
     Dates: start: 20080801, end: 20080901
  2. ACETYLCYSTEINE [Concomitant]
  3. PRILOSEC [Concomitant]

REACTIONS (4)
  - HEPATIC ENZYME INCREASED [None]
  - MALAISE [None]
  - PHOTOPHOBIA [None]
  - VISION BLURRED [None]
